FAERS Safety Report 25504815 (Version 3)
Quarter: 2025Q3

REPORT INFORMATION
  Report Type: Report from Study
  Country: US (occurrence: US)
  Receive Date: 20250702
  Receipt Date: 20250907
  Transmission Date: 20251021
  Serious: Yes (Other)
  Sender: NOVARTIS
  Company Number: US-002147023-NVSC2025US057413

PATIENT
  Sex: Female

DRUGS (1)
  1. KESIMPTA [Suspect]
     Active Substance: OFATUMUMAB
     Indication: Product used for unknown indication
     Dosage: UNK, QW
     Route: 065
     Dates: start: 20250402

REACTIONS (8)
  - Diabetes mellitus [Unknown]
  - Feeling abnormal [Recovered/Resolved]
  - Feeling cold [Recovered/Resolved]
  - Chills [Recovered/Resolved]
  - Injection site discharge [Recovered/Resolved]
  - Balance disorder [Unknown]
  - Erythema [Unknown]
  - Pruritus [Unknown]
